FAERS Safety Report 21514591 (Version 1)
Quarter: 2022Q4

REPORT INFORMATION
  Report Type: Spontaneous
  Country: US (occurrence: US)
  Receive Date: 20221027
  Receipt Date: 20221027
  Transmission Date: 20230112
  Serious: Yes (Hospitalization)
  Sender: FDA-Public Use
  Company Number: US-MYLANLABS-2022M1118038

PATIENT
  Age: 20 Year
  Sex: Male

DRUGS (9)
  1. MESNA [Suspect]
     Active Substance: MESNA
     Indication: Ewing^s sarcoma
     Dosage: UNK UNK, CYCLE, DOSAGE: RECEIVED 14 CYCLES
     Route: 065
  2. IFOSFAMIDE [Suspect]
     Active Substance: IFOSFAMIDE
     Indication: Ewing^s sarcoma
     Dosage: 1800 MILLIGRAM/SQ. METER, CYCLE
     Route: 065
  3. ETOPOSIDE [Suspect]
     Active Substance: ETOPOSIDE
     Indication: Ewing^s sarcoma
     Dosage: 100 MILLIGRAM/SQ. METER, CYCLE
     Route: 065
  4. VINCRISTINE [Suspect]
     Active Substance: VINCRISTINE
     Indication: Ewing^s sarcoma
     Dosage: 2 MILLIGRAM/SQ. METER, CYCLE, DOSAGE: RECEIVED 14 CYCLES
     Route: 065
  5. ADRIAMYCIN [Suspect]
     Active Substance: DOXORUBICIN HYDROCHLORIDE
     Indication: Ewing^s sarcoma
     Dosage: 75 MILLIGRAM/SQ. METER, CYCLE,DOSAGE: RECEIVED 14 CYCLES
     Route: 065
  6. DEXAMETHASONE [Concomitant]
     Active Substance: DEXAMETHASONE
     Indication: Ewing^s sarcoma
     Dosage: 10 MILLIGRAM
     Route: 042
  7. ACETAMINOPHEN [Concomitant]
     Active Substance: ACETAMINOPHEN
     Indication: Ewing^s sarcoma
     Dosage: 500 MILLIGRAM
     Route: 048
  8. NAPROXEN [Concomitant]
     Active Substance: NAPROXEN
     Indication: Ewing^s sarcoma
     Dosage: 500 MILLIGRAM
     Route: 048
  9. DEXAMETHASONE [Concomitant]
     Active Substance: DEXAMETHASONE
     Indication: Ewing^s sarcoma
     Dosage: 4 MILLIGRAM, Q6H
     Route: 065

REACTIONS (1)
  - Febrile neutropenia [Unknown]
